FAERS Safety Report 10873790 (Version 1)
Quarter: 2015Q1

REPORT INFORMATION
  Report Type: Spontaneous
  Country: GB (occurrence: GB)
  Receive Date: 20150227
  Receipt Date: 20150227
  Transmission Date: 20150721
  Serious: Yes (Hospitalization)
  Sender: FDA-Public Use
  Company Number: GB-BAYER-2015-027669

PATIENT
  Age: 40 Year
  Sex: Female
  Weight: 87.99 kg

DRUGS (3)
  1. VENLAFAXINE [Concomitant]
     Active Substance: VENLAFAXINE HYDROCHLORIDE
     Dosage: UNK
     Dates: start: 2009
  2. MIRENA [Suspect]
     Active Substance: LEVONORGESTREL
     Indication: MENORRHAGIA
     Dosage: 20 MCG/24HR, CONT
     Route: 015
     Dates: start: 20140702, end: 20150124
  3. MIRENA [Suspect]
     Active Substance: LEVONORGESTREL
     Indication: PREMENSTRUAL SYNDROME

REACTIONS (10)
  - Nausea [Recovering/Resolving]
  - Syncope [Recovering/Resolving]
  - Anxiety [Recovering/Resolving]
  - Migraine [Recovering/Resolving]
  - Paraesthesia oral [Recovering/Resolving]
  - Abdominal pain upper [Recovering/Resolving]
  - Irritability [Recovering/Resolving]
  - Paraesthesia [Recovering/Resolving]
  - Depression [Recovering/Resolving]
  - Hypoaesthesia [Recovering/Resolving]

NARRATIVE: CASE EVENT DATE: 20140702
